FAERS Safety Report 9160285 (Version 2)
Quarter: 2013Q1

REPORT INFORMATION
  Report Type: Spontaneous
  Country: FR (occurrence: FR)
  Receive Date: 20130313
  Receipt Date: 20130319
  Transmission Date: 20140127
  Serious: Yes (Hospitalization, Other)
  Sender: FDA-Public Use
  Company Number: FR-PFIZER INC-2013081330

PATIENT
  Age: 38 Year
  Sex: Male

DRUGS (7)
  1. EFFEXOR [Suspect]
     Indication: SUICIDE ATTEMPT
     Dosage: 30 DF, SINGLE (30 UNITS IN ONE INTAKE)
     Route: 048
     Dates: start: 20120528, end: 20120528
  2. ATARAX [Suspect]
     Indication: SUICIDE ATTEMPT
     Dosage: 750 MG, SINGLE (30 DF, SINGLE)
     Route: 048
     Dates: start: 20120528, end: 20120528
  3. PARACETAMOL [Suspect]
     Indication: SUICIDE ATTEMPT
     Dosage: 48G OF PARACETAMOL IN TOTAL (5 BOXES OF PARACETAMOL 1G, IN TOTAL 48 G INCLUDING 1 BOX OF DAFALGAN)
     Route: 048
     Dates: start: 20120528, end: 20120528
  4. ZOPICLONE [Suspect]
     Indication: SUICIDE ATTEMPT
     Dosage: 1 BOX IN ONE INTAKE
     Route: 048
     Dates: start: 20120528, end: 20120528
  5. BROMAZEPAM [Suspect]
     Indication: SUICIDE ATTEMPT
     Dosage: 30 DF, SINGLE (30 UNITS IN ONE INTAKE)
     Route: 048
     Dates: start: 20120528, end: 20120528
  6. MOPRAL [Suspect]
     Indication: SUICIDE ATTEMPT
     Dosage: 140 MG, SINGLE (20 MG, 7 DF, SINGLE)
     Route: 048
     Dates: start: 20120528, end: 20120528
  7. DAFALGAN [Suspect]
     Indication: SUICIDE ATTEMPT
     Dosage: 1 G, 1 BOX OF 1G; TOTAL PARACETMOL: 48 G IN ONE INTAKE
     Route: 048
     Dates: start: 20120528, end: 20120528

REACTIONS (3)
  - Intentional overdose [Unknown]
  - Drug-induced liver injury [Recovering/Resolving]
  - Suicide attempt [Unknown]
